FAERS Safety Report 20178362 (Version 2)
Quarter: 2021Q4

REPORT INFORMATION
  Report Type: Report from Study
  Country: US (occurrence: US)
  Receive Date: 20211213
  Receipt Date: 20211216
  Transmission Date: 20220303
  Serious: Yes (Hospitalization, Other)
  Sender: FDA-Public Use
  Company Number: US-ABBVIE-21K-163-4193296-00

PATIENT
  Sex: Female

DRUGS (1)
  1. CREON [Suspect]
     Active Substance: PANCRELIPASE AMYLASE\PANCRELIPASE LIPASE\PANCRELIPASE PROTEASE
     Indication: Product used for unknown indication
     Route: 048

REACTIONS (7)
  - Post procedural pulmonary embolism [Unknown]
  - Pancreaticoduodenectomy [Unknown]
  - Hernia [Unknown]
  - Steatorrhoea [Unknown]
  - Pancreatic failure [Unknown]
  - Flatulence [Unknown]
  - Abdominal pain [Unknown]
